FAERS Safety Report 5407903-X (Version None)
Quarter: 2007Q3

REPORT INFORMATION
  Report Type: 
  Country: None (occurrence: None)
  Receive Date: 20070803
  Receipt Date: 20070731
  Transmission Date: 20080115
  Serious: Yes (Other)
  Sender: FDA-Public Use
  Company Number: 13705983

PATIENT
  Sex: Female
  Weight: 61.22 kg

DRUGS (5)
  1. EMSAM [Suspect]
     Indication: DEPRESSION
     Dosage: 12 MILLIGRAM, 12 HOUR
     Dates: start: 20070101
  2. EMSAM [Suspect]
  3. KLONOPIN [Concomitant]
  4. SEASONALE [Concomitant]
  5. AMBIEN CR [Concomitant]

REACTIONS (11)
  - APPLICATION SITE ERYTHEMA [None]
  - APPLICATION SITE IRRITATION [None]
  - DEPRESSION [None]
  - DIZZINESS [None]
  - DRUG INEFFECTIVE [None]
  - HYPOTENSION [None]
  - INCORRECT DOSE ADMINISTERED [None]
  - LOSS OF CONSCIOUSNESS [None]
  - MEDICAL DEVICE COMPLICATION [None]
  - RENAL FAILURE ACUTE [None]
  - RENAL PAIN [None]
